FAERS Safety Report 21943721 (Version 1)
Quarter: 2023Q1

REPORT INFORMATION
  Report Type: Spontaneous
  Country: US (occurrence: None)
  Receive Date: 20230201
  Receipt Date: 20230201
  Transmission Date: 20230418
  Serious: Yes (Hospitalization)
  Sender: FDA-Public Use
  Company Number: None

PATIENT
  Sex: Female
  Weight: 77.2 kg

DRUGS (3)
  1. TAXOL [Suspect]
     Active Substance: PACLITAXEL
     Indication: Chemotherapy
     Dates: end: 20221107
  2. PERTUZUMAB [Suspect]
     Active Substance: PERTUZUMAB
     Indication: Chemotherapy
     Dates: end: 20221205
  3. HERCEPTIN [Suspect]
     Active Substance: TRASTUZUMAB
     Indication: Chemotherapy
     Dates: end: 20221205

REACTIONS (6)
  - Erythema [None]
  - Condition aggravated [None]
  - Feeling hot [None]
  - Post procedural infection [None]
  - Breast tenderness [None]
  - Staphylococcal infection [None]

NARRATIVE: CASE EVENT DATE: 20230127
